FAERS Safety Report 6169572-3 (Version None)
Quarter: 2009Q2

REPORT INFORMATION
  Report Type: 
  Country: None (occurrence: None)
  Receive Date: 20090424
  Receipt Date: 20090213
  Transmission Date: 20091009
  Serious: No
  Sender: FDA-Public Use
  Company Number: SPV1-2009-00184

PATIENT
  Sex: Male

DRUGS (1)
  1. VYVANSE [Suspect]

REACTIONS (6)
  - ARTHRALGIA [None]
  - DECREASED APPETITE [None]
  - DRUG INEFFECTIVE [None]
  - HEADACHE [None]
  - MOOD ALTERED [None]
  - WEIGHT DECREASED [None]
